FAERS Safety Report 16380028 (Version 1)
Quarter: 2019Q2

REPORT INFORMATION
  Report Type: Spontaneous
  Country: BR (occurrence: BR)
  Receive Date: 20190531
  Receipt Date: 20190531
  Transmission Date: 20190711
  Serious: Yes (Disabling, Other)
  Sender: FDA-Public Use
  Company Number: BR-ABBVIE-19K-020-2799352-00

PATIENT
  Sex: Male
  Weight: 67 kg

DRUGS (5)
  1. HUMIRA [Suspect]
     Active Substance: ADALIMUMAB
     Route: 058
  2. RISEDRONATE [Concomitant]
     Active Substance: RISEDRONATE SODIUM
     Indication: OSTEOPOROSIS
     Route: 048
     Dates: start: 2010
  3. BENZETACIL [Concomitant]
     Indication: PRODUCT USED FOR UNKNOWN INDICATION
  4. HUMIRA [Suspect]
     Active Substance: ADALIMUMAB
     Indication: RHEUMATOID ARTHRITIS
     Route: 058
     Dates: start: 2011
  5. METHOTREXATE. [Concomitant]
     Active Substance: METHOTREXATE
     Indication: PRODUCT USED FOR UNKNOWN INDICATION

REACTIONS (13)
  - Malaise [Unknown]
  - Arthralgia [Recovering/Resolving]
  - Gait inability [Unknown]
  - Swelling [Unknown]
  - Gait disturbance [Unknown]
  - Injection site pain [Unknown]
  - Erythema [Unknown]
  - Therapeutic response shortened [Unknown]
  - Retching [Unknown]
  - Unevaluable event [Unknown]
  - Cartilage injury [Unknown]
  - Atrophy [Recovered/Resolved]
  - Fall [Unknown]
